FAERS Safety Report 6978211-0 (Version None)
Quarter: 2010Q3

REPORT INFORMATION
  Report Type: 
  Country: None (occurrence: None)
  Receive Date: 20100913
  Receipt Date: 20100901
  Transmission Date: 20110219
  Serious: Yes (Other)
  Sender: FDA-Public Use
  Company Number: GR-ELI_LILLY_AND_COMPANY-GR201009002066

PATIENT
  Age: 46 Year
  Sex: Male

DRUGS (4)
  1. FORTEO [Suspect]
     Dosage: 20 UG, DAILY (1/D)
     Route: 058
     Dates: start: 20090501
  2. DILATREND [Concomitant]
     Indication: TACHYCARDIA
     Dosage: 6.25 MG, 2/D
     Route: 048
  3. FILICINE [Concomitant]
     Indication: THALASSAEMIA
     Dosage: UNK, UNKNOWN
     Route: 048
  4. LASIX [Concomitant]
     Dosage: UNK, UNKNOWN
     Route: 048

REACTIONS (1)
  - HYPOTENSION [None]
